FAERS Safety Report 4383303-9 (Version None)
Quarter: 2004Q2

REPORT INFORMATION
  Report Type: 
  Country: None (occurrence: None)
  Receive Date: 20040618
  Receipt Date: 20040601
  Transmission Date: 20050107
  Serious: Yes (Disabling, Other)
  Sender: FDA-Public Use
  Company Number: USA040668852

PATIENT
  Age: 50 Year
  Sex: Female
  Weight: 114 kg

DRUGS (2)
  1. HUMALOG [Suspect]
     Dosage: 60 U DAY
     Dates: start: 20020101
  2. INSULIN [Suspect]
     Dates: start: 19790101

REACTIONS (8)
  - BLOOD GLUCOSE INCREASED [None]
  - BLOOD PRESSURE INCREASED [None]
  - CARDIAC FAILURE CONGESTIVE [None]
  - CEREBROVASCULAR ACCIDENT [None]
  - MYOCARDIAL INFARCTION [None]
  - PHARMACEUTICAL PRODUCT COMPLAINT [None]
  - WEIGHT FLUCTUATION [None]
  - WEIGHT INCREASED [None]
